FAERS Safety Report 5379434-7 (Version None)
Quarter: 2007Q3

REPORT INFORMATION
  Report Type: 
  Country: None (occurrence: None)
  Receive Date: 20070703
  Receipt Date: 20070620
  Transmission Date: 20080115
  Serious: Yes (Hospitalization)
  Sender: FDA-Public Use
  Company Number: 2007BI013388

PATIENT
  Age: 62 Year
  Sex: Female

DRUGS (3)
  1. NATALIZUMAB [Suspect]
     Indication: MULTIPLE SCLEROSIS
     Dosage: 300 MG; QM; IV
     Route: 042
     Dates: start: 20050214, end: 20070214
  2. NATALIZUMAB [Suspect]
     Indication: MULTIPLE SCLEROSIS
     Dosage: 300 MG; QM; IV
     Route: 042
     Dates: start: 20070301
  3. AVONEX [Concomitant]

REACTIONS (6)
  - FALL [None]
  - GAIT DISTURBANCE [None]
  - HEAD INJURY [None]
  - MALAISE [None]
  - NAUSEA [None]
  - THINKING ABNORMAL [None]
